FAERS Safety Report 5545579-1 (Version None)
Quarter: 2007Q4

REPORT INFORMATION
  Report Type: 
  Country: None (occurrence: None)
  Receive Date: 20071210
  Receipt Date: 20071120
  Transmission Date: 20080405
  Serious: Yes (Hospitalization)
  Sender: FDA-Public Use
  Company Number: 2007JP005061

PATIENT
  Age: 5 Year
  Sex: Male
  Weight: 24.5 kg

DRUGS (4)
  1. PROTOPIC [Suspect]
     Indication: DERMATITIS ATOPIC
     Dosage: 0.03 %, TOPICAL
     Route: 061
     Dates: start: 20050701
  2. ONON (PRANLUKAST ) [Concomitant]
  3. HIRUDOID (HEPARINOID) [Concomitant]
  4. PROPETO (WHITE SOFT PARAFFIN) [Concomitant]

REACTIONS (3)
  - B-CELL LYMPHOMA [None]
  - PHARYNGEAL OEDEMA [None]
  - TONSILLAR HYPERTROPHY [None]
